FAERS Safety Report 4490682-0 (Version None)
Quarter: 2004Q4

REPORT INFORMATION
  Report Type: 
  Country: None (occurrence: None)
  Receive Date: 20041102
  Receipt Date: 20041020
  Transmission Date: 20050328
  Serious: Yes (Hospitalization)
  Sender: FDA-Public Use
  Company Number: JP-GLAXOSMITHKLINE-B0346468B

PATIENT
  Sex: Female

DRUGS (2)
  1. PAXIL [Suspect]
     Indication: AFFECTIVE DISORDER
     Dosage: 20MG PER DAY
     Route: 065
     Dates: start: 20030701
  2. UTEMERIN [Concomitant]
     Indication: DRUG USE FOR UNKNOWN INDICATION
     Route: 065

REACTIONS (1)
  - ABORTION THREATENED [None]
